FAERS Safety Report 18610702 (Version 1)
Quarter: 2020Q4

REPORT INFORMATION
  Report Type: Spontaneous
  Country: CN (occurrence: CN)
  Receive Date: 20201214
  Receipt Date: 20201214
  Transmission Date: 20210114
  Serious: Yes (Other)
  Sender: FDA-Public Use
  Company Number: CN-PFIZER INC-2020488026

PATIENT
  Age: 48 Year
  Sex: Female
  Weight: 64.5 kg

DRUGS (6)
  1. ENDOXAN [CYCLOPHOSPHAMIDE] [Suspect]
     Active Substance: CYCLOPHOSPHAMIDE
     Dosage: 0.8 G, 1X/DAY
     Route: 041
     Dates: start: 20200907, end: 20200907
  2. PHARMORUBICIN [Suspect]
     Active Substance: EPIRUBICIN
     Dosage: 130 MG, 1X/DAY
     Route: 041
     Dates: start: 20200726, end: 20200726
  3. ENDOXAN [CYCLOPHOSPHAMIDE] [Suspect]
     Active Substance: CYCLOPHOSPHAMIDE
     Indication: BREAST CANCER
     Dosage: 0.8 G, 1X/DAY
     Route: 041
     Dates: start: 20200816, end: 20200816
  4. PHARMORUBICIN [Suspect]
     Active Substance: EPIRUBICIN
     Dosage: 130 MG, 1X/DAY (THIRD CHEMOTHERAPY)
     Route: 041
     Dates: start: 20200907, end: 20200907
  5. PHARMORUBICIN [Suspect]
     Active Substance: EPIRUBICIN
     Indication: BREAST CANCER
     Dosage: 130 MG, 1X/DAY
     Route: 041
     Dates: start: 20200816, end: 20200816
  6. ENDOXAN [CYCLOPHOSPHAMIDE] [Suspect]
     Active Substance: CYCLOPHOSPHAMIDE
     Dosage: 0.8 G, 1X/DAY
     Route: 041
     Dates: start: 20200726, end: 20200726

REACTIONS (2)
  - Drug-induced liver injury [Unknown]
  - Transaminases increased [Unknown]

NARRATIVE: CASE EVENT DATE: 20200824
